FAERS Safety Report 5044234-4 (Version None)
Quarter: 2006Q2

REPORT INFORMATION
  Report Type: 
  Country: None (occurrence: None)
  Receive Date: 20060629
  Receipt Date: 20060619
  Transmission Date: 20061013
  Serious: Yes (Disabling, Other)
  Sender: FDA-Public Use
  Company Number: 200611890BWH

PATIENT
  Age: 64 Year
  Sex: Male
  Weight: 108.4097 kg

DRUGS (3)
  1. NEXAVAR [Suspect]
     Indication: METASTATIC RENAL CELL CARCINOMA
     Dosage: SEE IMAGE, ORAL
     Route: 048
     Dates: start: 20060101, end: 20060613
  2. NEXAVAR [Suspect]
     Indication: METASTATIC RENAL CELL CARCINOMA
     Dosage: SEE IMAGE, ORAL
     Route: 048
     Dates: start: 20060202
  3. NEXAVAR [Suspect]
     Indication: METASTATIC RENAL CELL CARCINOMA
     Dosage: SEE IMAGE, ORAL
     Route: 048
     Dates: start: 20060616

REACTIONS (12)
  - AMNESIA [None]
  - APTYALISM [None]
  - COUGH [None]
  - DIARRHOEA [None]
  - DRY SKIN [None]
  - DYSPHONIA [None]
  - EYE PAIN [None]
  - HAEMOPTYSIS [None]
  - HYPERTENSION [None]
  - MOBILITY DECREASED [None]
  - SALIVA DISCOLOURATION [None]
  - WEIGHT DECREASED [None]
